FAERS Safety Report 20602719 (Version 1)
Quarter: 2022Q1

REPORT INFORMATION
  Report Type: Report from Study
  Country: ES (occurrence: ES)
  Receive Date: 20220316
  Receipt Date: 20220316
  Transmission Date: 20220424
  Serious: Yes (Death, Hospitalization)
  Sender: FDA-Public Use
  Company Number: ES-MYLANLABS-2022M1019851

PATIENT
  Age: 69 Year
  Sex: Male

DRUGS (2)
  1. LINEZOLID [Suspect]
     Active Substance: LINEZOLID
     Indication: Endocarditis staphylococcal
     Dosage: UNK
     Route: 065
  2. LINEZOLID [Suspect]
     Active Substance: LINEZOLID
     Indication: Endocarditis

REACTIONS (1)
  - Drug ineffective [Fatal]
